FAERS Safety Report 5945548-3 (Version None)
Quarter: 2008Q4

REPORT INFORMATION
  Report Type: 
  Country: None (occurrence: None)
  Receive Date: 20081107
  Receipt Date: 20081105
  Transmission Date: 20090506
  Serious: Yes (Other)
  Sender: FDA-Public Use
  Company Number: US-B.I. PHARMACEUTICALS,INC./RIDGEFIELD-2008-BP-16808BP

PATIENT
  Sex: Male

DRUGS (3)
  1. SPIRIVA [Suspect]
     Indication: CHRONIC OBSTRUCTIVE PULMONARY DISEASE
     Dosage: 18MCG
     Route: 055
     Dates: start: 20050401
  2. SIMVASTATIN [Concomitant]
     Indication: BLOOD CHOLESTEROL
  3. BLOOD PRESSURE MED [Concomitant]
     Indication: BLOOD PRESSURE

REACTIONS (1)
  - CHEST PAIN [None]
